FAERS Safety Report 25058911 (Version 1)
Quarter: 2025Q1

REPORT INFORMATION
  Report Type: Spontaneous
  Country: JP (occurrence: JP)
  Receive Date: 20250310
  Receipt Date: 20250310
  Transmission Date: 20250408
  Serious: Yes (Hospitalization)
  Sender: MYLAN
  Company Number: JP-MYLANLABS-2025M1019570

PATIENT
  Age: 61 Year
  Sex: Male

DRUGS (32)
  1. XALATAN [Suspect]
     Active Substance: LATANOPROST
     Indication: Intraocular pressure increased
  2. XALATAN [Suspect]
     Active Substance: LATANOPROST
     Route: 065
  3. XALATAN [Suspect]
     Active Substance: LATANOPROST
     Route: 065
  4. XALATAN [Suspect]
     Active Substance: LATANOPROST
  5. BIMATOPROST [Suspect]
     Active Substance: BIMATOPROST
     Indication: Intraocular pressure increased
  6. BIMATOPROST [Suspect]
     Active Substance: BIMATOPROST
     Route: 065
  7. BIMATOPROST [Suspect]
     Active Substance: BIMATOPROST
     Route: 065
  8. BIMATOPROST [Suspect]
     Active Substance: BIMATOPROST
  9. TIMOLOL [Suspect]
     Active Substance: TIMOLOL
     Indication: Intraocular pressure increased
  10. TIMOLOL [Suspect]
     Active Substance: TIMOLOL
     Route: 065
  11. TIMOLOL [Suspect]
     Active Substance: TIMOLOL
     Route: 065
  12. TIMOLOL [Suspect]
     Active Substance: TIMOLOL
  13. DORZOLAMIDE [Suspect]
     Active Substance: DORZOLAMIDE
     Indication: Intraocular pressure increased
  14. DORZOLAMIDE [Suspect]
     Active Substance: DORZOLAMIDE
     Route: 065
  15. DORZOLAMIDE [Suspect]
     Active Substance: DORZOLAMIDE
     Route: 065
  16. DORZOLAMIDE [Suspect]
     Active Substance: DORZOLAMIDE
  17. BRIMONIDINE [Suspect]
     Active Substance: BRIMONIDINE TARTRATE
     Indication: Intraocular pressure increased
  18. BRIMONIDINE [Suspect]
     Active Substance: BRIMONIDINE TARTRATE
     Route: 065
  19. BRIMONIDINE [Suspect]
     Active Substance: BRIMONIDINE TARTRATE
     Route: 065
  20. BRIMONIDINE [Suspect]
     Active Substance: BRIMONIDINE TARTRATE
  21. RIPASUDIL [Suspect]
     Active Substance: RIPASUDIL
     Indication: Intraocular pressure increased
  22. RIPASUDIL [Suspect]
     Active Substance: RIPASUDIL
     Route: 065
  23. RIPASUDIL [Suspect]
     Active Substance: RIPASUDIL
     Route: 065
  24. RIPASUDIL [Suspect]
     Active Substance: RIPASUDIL
  25. BRINZOLAMIDE [Suspect]
     Active Substance: BRINZOLAMIDE
     Indication: Intraocular pressure increased
  26. BRINZOLAMIDE [Suspect]
     Active Substance: BRINZOLAMIDE
     Route: 065
  27. BRINZOLAMIDE [Suspect]
     Active Substance: BRINZOLAMIDE
     Route: 065
  28. BRINZOLAMIDE [Suspect]
     Active Substance: BRINZOLAMIDE
  29. CARTEOLOL [Suspect]
     Active Substance: CARTEOLOL
     Indication: Intraocular pressure increased
  30. CARTEOLOL [Suspect]
     Active Substance: CARTEOLOL
     Route: 065
  31. CARTEOLOL [Suspect]
     Active Substance: CARTEOLOL
     Route: 065
  32. CARTEOLOL [Suspect]
     Active Substance: CARTEOLOL

REACTIONS (1)
  - Drug ineffective [Unknown]
